APPROVED DRUG PRODUCT: PREDNISONE
Active Ingredient: PREDNISONE
Strength: 2MG
Dosage Form/Route: TABLET, DELAYED RELEASE;ORAL
Application: A204867 | Product #002
Applicant: ACTAVIS LABORATORIES FL INC
Approved: Apr 25, 2017 | RLD: No | RS: No | Type: DISCN